FAERS Safety Report 19182652 (Version 2)
Quarter: 2021Q2

REPORT INFORMATION
  Report Type: Report from Study
  Country: CZ (occurrence: CZ)
  Receive Date: 20210426
  Receipt Date: 20210602
  Transmission Date: 20210717
  Serious: Yes (Hospitalization)
  Sender: FDA-Public Use
  Company Number: CZ-EXELIXIS-XL18421039549

PATIENT
  Age: 74 Year
  Sex: Male

DRUGS (7)
  1. XL184 [Suspect]
     Active Substance: CABOZANTINIB
     Indication: HORMONE-REFRACTORY PROSTATE CANCER
     Dosage: 40 MG, QD
     Route: 048
     Dates: start: 20210401
  2. HYDROCHLOROTHIAZID [Concomitant]
     Active Substance: HYDROCHLOROTHIAZIDE
     Indication: HYPERTENSION
     Dates: start: 20120101
  3. KINITO [Concomitant]
     Indication: NAUSEA
     Dates: start: 20210408
  4. OTANOL [Concomitant]
     Indication: NAUSEA
     Dates: start: 20210408
  5. TONARSSA [Concomitant]
     Active Substance: AMLODIPINE BESYLATE\PERINDOPRIL ERBUMINE
     Indication: HYPERTENSION
     Dates: start: 20120101
  6. ATEZOLIZUMAB. [Suspect]
     Active Substance: ATEZOLIZUMAB
     Indication: HORMONE-REFRACTORY PROSTATE CANCER
     Dosage: 1200 MG, Q3WEEKS
     Route: 042
     Dates: start: 20210401
  7. TENSIOMIN [Concomitant]
     Active Substance: CAPTOPRIL
     Indication: HYPERTENSION
     Dates: start: 20210211

REACTIONS (1)
  - Syncope [Not Recovered/Not Resolved]

NARRATIVE: CASE EVENT DATE: 20210414
